FAERS Safety Report 4750623-5 (Version None)
Quarter: 2005Q3

REPORT INFORMATION
  Report Type: 
  Country: None (occurrence: None)
  Receive Date: 20050818
  Receipt Date: 20050804
  Transmission Date: 20060218
  Serious: Yes (Hospitalization)
  Sender: FDA-Public Use
  Company Number: JP-2004-031229

PATIENT
  Age: 34 Year
  Sex: Female

DRUGS (3)
  1. BETAFERON (INTEFERON BETA - 1B) INJECTION, 250 MICROG [Suspect]
     Indication: RELAPSING-REMITTING MULTIPLE SCLEROSIS
     Dosage: 8 MIU, EVERY 2D, SUBCUTANEOUS
     Route: 058
     Dates: start: 20040329, end: 20040629
  2. CYTOTEC [Concomitant]
  3. GASTER (FAMOTIDINE) TABLET [Concomitant]

REACTIONS (4)
  - EOSINOPHILIC PNEUMONIA [None]
  - HYPERSENSITIVITY [None]
  - INJECTION SITE ERYTHEMA [None]
  - NASOPHARYNGITIS [None]
